FAERS Safety Report 9215952 (Version 2)
Quarter: 2013Q2

REPORT INFORMATION
  Report Type: Spontaneous
  Country: US (occurrence: US)
  Receive Date: 20130408
  Receipt Date: 20130415
  Transmission Date: 20140414
  Serious: Yes (Hospitalization)
  Sender: FDA-Public Use
  Company Number: US-TEVA-396688USA

PATIENT
  Age: 57 Year
  Sex: Female

DRUGS (1)
  1. TREANDA [Suspect]
     Indication: CHRONIC LYMPHOCYTIC LEUKAEMIA
     Dosage: QD, Q4
     Dates: start: 20130306

REACTIONS (3)
  - Confusional state [Unknown]
  - Lethargy [Unknown]
  - Pyrexia [Unknown]
